FAERS Safety Report 23527055 (Version 1)
Quarter: 2024Q1

REPORT INFORMATION
  Report Type: Spontaneous
  Country: US (occurrence: None)
  Receive Date: 20240215
  Receipt Date: 20240215
  Transmission Date: 20240409
  Serious: Yes (Hospitalization)
  Sender: FDA-Public Use
  Company Number: None

PATIENT
  Age: 57 Year
  Sex: Male
  Weight: 125.5 kg

DRUGS (3)
  1. CARBOPLATIN [Suspect]
     Active Substance: CARBOPLATIN
     Dates: end: 20240207
  2. ERBITUX [Suspect]
     Active Substance: CETUXIMAB
     Dates: end: 20240207
  3. TAXOTERE [Suspect]
     Active Substance: DOCETAXEL
     Dates: end: 20240207

REACTIONS (10)
  - Nausea [None]
  - Vomiting [None]
  - Diarrhoea [None]
  - Hypotension [None]
  - Tachycardia [None]
  - Enterocolitis [None]
  - Oesophagitis [None]
  - Oesophageal motility disorder [None]
  - Gastrooesophageal reflux disease [None]
  - Sepsis [None]

NARRATIVE: CASE EVENT DATE: 20240212
